FAERS Safety Report 6080865-0 (Version None)
Quarter: 2009Q1

REPORT INFORMATION
  Report Type: 
  Country: None (occurrence: None)
  Receive Date: 20090217
  Receipt Date: 20090205
  Transmission Date: 20090719
  Serious: Yes (Hospitalization)
  Sender: FDA-Public Use
  Company Number: DE-PFIZER INC-2008043015

PATIENT
  Sex: Female
  Weight: 80 kg

DRUGS (1)
  1. SUNITINIB MALATE [Suspect]
     Indication: BREAST CANCER
     Dosage: 12.5 MG, 3X/DAY
     Route: 048
     Dates: start: 20080229, end: 20080516

REACTIONS (3)
  - HYPOKALAEMIA [None]
  - HYPONATRAEMIA [None]
  - THROMBOCYTOPENIA [None]
